FAERS Safety Report 5327266-8 (Version None)
Quarter: 2007Q2

REPORT INFORMATION
  Report Type: 
  Country: None (occurrence: None)
  Receive Date: 20070517
  Receipt Date: 20070508
  Transmission Date: 20071010
  Serious: Yes (Hospitalization)
  Sender: FDA-Public Use
  Company Number: AU-ROCHE-496530

PATIENT
  Age: 67 Year
  Sex: Female
  Weight: 75 kg

DRUGS (11)
  1. CEFTRIAXONE SODIUM [Suspect]
     Route: 042
  2. CEPHALEXIN [Suspect]
     Indication: DRUG USE FOR UNKNOWN INDICATION
     Route: 048
     Dates: start: 20070103
  3. METRONIDAZOLE [Suspect]
     Route: 065
  4. VANCOMYCIN HYDROCHLORIDE [Suspect]
     Indication: DRUG USE FOR UNKNOWN INDICATION
     Dosage: 1.0 DOSE UNSPECIFIED ONE TIME.
     Route: 065
  5. TRIMETHOPRIM [Suspect]
     Indication: URINARY TRACT DISORDER
     Dosage: 1.0 DOSE UNSPECIFIED DAILY.
     Route: 065
  6. METFORMIN HYDROCHLORIDE [Concomitant]
  7. GLIMEPIRIDE [Concomitant]
  8. LIPITOR [Concomitant]
  9. ATACAND [Concomitant]
  10. METOPROLOL TARTRATE [Concomitant]
  11. METOCLOPRAMIDE HCL [Concomitant]
     Dosage: TRADE NAME REPORTED AS METOCLOPRAMIDE HYDROCHLORIDE.

REACTIONS (2)
  - DERMATITIS BULLOUS [None]
  - DERMATITIS EXFOLIATIVE [None]
